FAERS Safety Report 4988531-7 (Version None)
Quarter: 2006Q2

REPORT INFORMATION
  Report Type: 
  Country: None (occurrence: None)
  Receive Date: 20060502
  Receipt Date: 20031016
  Transmission Date: 20061013
  Serious: Yes (Hospitalization)
  Sender: FDA-Public Use
  Company Number: US-GLAXOSMITHKLINE-A0430914A

PATIENT
  Age: 49 Year
  Sex: Female
  Weight: 64.1 kg

DRUGS (9)
  1. LOTRONEX [Suspect]
     Route: 048
     Dates: start: 20000801
  2. LIPITOR [Concomitant]
     Dosage: 10MG PER DAY
  3. ESTRACE [Concomitant]
     Dosage: 1MG PER DAY
  4. CITRUCEL [Concomitant]
     Route: 065
     Dates: start: 20000821
  5. CIPROFLOXACIN HCL [Concomitant]
     Dates: start: 20000801, end: 20000801
  6. FLAGYL [Concomitant]
     Dates: start: 20000801, end: 20000801
  7. MULTI-VITAMIN [Concomitant]
  8. VITAMIN E [Concomitant]
  9. FIBER CON [Concomitant]
     Dosage: 5MG PER DAY

REACTIONS (8)
  - ABDOMINAL PAIN [None]
  - CHILLS [None]
  - COLITIS ISCHAEMIC [None]
  - DIVERTICULITIS [None]
  - MIGRAINE [None]
  - NAUSEA [None]
  - PYREXIA [None]
  - WHITE BLOOD CELL COUNT INCREASED [None]
